FAERS Safety Report 9179273 (Version 2)
Quarter: 2013Q2

REPORT INFORMATION
  Report Type: Report from Study
  Country: MX (occurrence: MX)
  Receive Date: 20130321
  Receipt Date: 20130425
  Transmission Date: 20140414
  Serious: Yes (Hospitalization)
  Sender: FDA-Public Use
  Company Number: PHHY2013MX027692

PATIENT
  Age: 66 Year
  Sex: Male

DRUGS (1)
  1. CO-DIOVAN [Suspect]
     Indication: HYPERTENSION
     Dosage: 1 DF(160MG VAL, 25MG HCT), DAILY
     Route: 048
     Dates: start: 201210, end: 20130215

REACTIONS (1)
  - Lung infection [Recovered/Resolved]
